FAERS Safety Report 10173967 (Version 4)
Quarter: 2018Q1

REPORT INFORMATION
  Report Type: Spontaneous
  Country: CA (occurrence: CA)
  Receive Date: 20140513
  Receipt Date: 20180315
  Transmission Date: 20180508
  Serious: Yes (Disabling)
  Sender: FDA-Public Use
  Company Number: 2014-1089-SPO

PATIENT
  Age: 47 Year
  Sex: Female

DRUGS (7)
  1. NUTRASEA HP (OMEGA-3 MARINE TRIGLYCERIDES) [Concomitant]
     Route: 065
  2. 5-HTP (OXITRIPTAN) [Concomitant]
     Route: 065
  3. TYLENOL [Concomitant]
     Active Substance: ACETAMINOPHEN
     Route: 065
  4. PROMETRIUM [Suspect]
     Active Substance: PROGESTERONE
     Route: 048
     Dates: start: 201111
  5. ESTROGEL [Suspect]
     Active Substance: ESTRADIOL
     Indication: UTERINE OPERATION
     Route: 061
     Dates: start: 201111
  6. ESTROGEL [Suspect]
     Active Substance: ESTRADIOL
     Route: 061
     Dates: start: 201310
  7. ESTROGEL [Suspect]
     Active Substance: ESTRADIOL
     Route: 061

REACTIONS (8)
  - Plantar fasciitis [Unknown]
  - Migraine with aura [Recovered/Resolved]
  - Neuralgia [Unknown]
  - Product use in unapproved indication [None]
  - Product use issue [None]
  - Oedema [Unknown]
  - Breast pain [Unknown]
  - Underdose [None]

NARRATIVE: CASE EVENT DATE: 201111
